FAERS Safety Report 11430235 (Version 1)
Quarter: 2015Q3

REPORT INFORMATION
  Report Type: Spontaneous
  Country: US (occurrence: US)
  Receive Date: 20150828
  Receipt Date: 20150828
  Transmission Date: 20151125
  Serious: Yes (Other)
  Sender: FDA-Public Use
  Company Number: US-ROCHE-1174009

PATIENT
  Age: 60 Year
  Sex: Female
  Weight: 74.46 kg

DRUGS (3)
  1. RIBAVIRIN. [Suspect]
     Active Substance: RIBAVIRIN
     Indication: CHRONIC HEPATITIS C
     Dosage: 3 TABS AM+2 TABS PM
     Route: 065
     Dates: start: 20121207, end: 20121228
  2. PEGASYS [Suspect]
     Active Substance: PEGINTERFERON ALFA-2A
     Indication: CHRONIC HEPATITIS C
     Route: 058
     Dates: start: 20121207, end: 20130107
  3. TELAPREVIR [Suspect]
     Active Substance: TELAPREVIR
     Indication: CHRONIC HEPATITIS C
     Route: 065
     Dates: start: 20121207, end: 20121228

REACTIONS (10)
  - Nausea [Unknown]
  - Rash [Recovered/Resolved]
  - Dry mouth [Unknown]
  - Fatigue [Unknown]
  - Pain [Unknown]
  - Thermal burn [Unknown]
  - Mass [Unknown]
  - Pruritus [Recovered/Resolved]
  - Blister [Unknown]
  - Dysphagia [Unknown]

NARRATIVE: CASE EVENT DATE: 20121226
